FAERS Safety Report 16373503 (Version 3)
Quarter: 2019Q4

REPORT INFORMATION
  Report Type: Spontaneous
  Country: US (occurrence: US)
  Receive Date: 20190530
  Receipt Date: 20191218
  Transmission Date: 20200122
  Serious: Yes (Hospitalization, Other)
  Sender: FDA-Public Use
  Company Number: US-SA-2019SA144345

PATIENT
  Age: 80 Year
  Sex: Female
  Weight: 80 kg

DRUGS (8)
  1. LIPITOR [Concomitant]
     Active Substance: ATORVASTATIN CALCIUM
  2. DUPIXENT [Suspect]
     Active Substance: DUPILUMAB
     Indication: ASTHMA
     Dosage: 300 MG, QOW
     Route: 058
     Dates: start: 20190508
  3. COZAAR [Concomitant]
     Active Substance: LOSARTAN POTASSIUM
  4. PROPAFENONE. [Concomitant]
     Active Substance: PROPAFENONE
  5. PRADAXA [Concomitant]
     Active Substance: DABIGATRAN ETEXILATE MESYLATE
  6. XANAX [Concomitant]
     Active Substance: ALPRAZOLAM
  7. AMLODIPIN BESYLATE AND BENAZEPRIL HYDROCHLORI [Concomitant]
     Active Substance: AMLODIPINE BESYLATE\BENAZEPRIL HYDROCHLORIDE
  8. SINGULAIR [Concomitant]
     Active Substance: MONTELUKAST SODIUM

REACTIONS (4)
  - Atrial fibrillation [Unknown]
  - Asthma [Unknown]
  - Lethargy [Unknown]
  - Thyroid mass [Unknown]

NARRATIVE: CASE EVENT DATE: 2019
